FAERS Safety Report 4881679-7 (Version None)
Quarter: 2005Q4

REPORT INFORMATION
  Report Type: 
  Country: None (occurrence: None)
  Receive Date: 20051201
  Receipt Date: 20051020
  Transmission Date: 20060501
  Serious: Yes (Life-Threatening)
  Sender: FDA-Public Use
  Company Number: 246581

PATIENT
  Age: 65 Year
  Sex: Female
  Weight: 99.8 kg

DRUGS (1)
  1. NOVOLOG MIX 70/30 [Suspect]
     Indication: INSULIN-REQUIRING TYPE II DIABETES MELLITUS
     Dosage: 145 IU, QD, SUBCUTANEOUS
     Route: 058
     Dates: start: 20030101

REACTIONS (1)
  - HYPOGLYCAEMIC COMA [None]
